FAERS Safety Report 8507973-6 (Version None)
Quarter: 2012Q3

REPORT INFORMATION
  Report Type: 
  Country: None (occurrence: None)
  Receive Date: 20120713
  Receipt Date: 20120709
  Transmission Date: 20120928
  Serious: Yes (Hospitalization)
  Sender: FDA-Public Use
  Company Number: FR-JNJFOC-20111110031

PATIENT
  Sex: Male
  Weight: 46.8 kg

DRUGS (5)
  1. BUDESONIDE [Concomitant]
  2. REMICADE [Suspect]
     Indication: CROHN'S DISEASE
     Route: 042
     Dates: start: 20090403
  3. GROWTH HORMONE [Concomitant]
  4. HUMIRA [Concomitant]
     Dates: start: 20110630
  5. REMICADE [Suspect]
     Route: 042
     Dates: start: 20110531, end: 20110531

REACTIONS (1)
  - CROHN'S DISEASE [None]
